FAERS Safety Report 18744633 (Version 1)
Quarter: 2021Q1

REPORT INFORMATION
  Report Type: Spontaneous
  Country: US (occurrence: US)
  Receive Date: 20210115
  Receipt Date: 20210115
  Transmission Date: 20210419
  Serious: Yes (Other)
  Sender: FDA-Public Use
  Company Number: US-NOVEN PHARMACEUTICALS, INC.-2021US000018

PATIENT
  Age: 35 Year
  Sex: Female
  Weight: 73 kg

DRUGS (7)
  1. LIDOCAINE. [Suspect]
     Active Substance: LIDOCAINE
     Indication: OFF LABEL USE
     Dosage: 3MG/MIN, INFUSION
     Route: 042
  2. AMIODARONE HCL [Concomitant]
     Active Substance: AMIODARONE HYDROCHLORIDE
     Dosage: 1MG/MIN FOR SIX HOURS
     Route: 065
  3. LIDOCAINE. [Suspect]
     Active Substance: LIDOCAINE
     Dosage: 78MG BOLUS
     Route: 042
  4. AMIODARONE HCL [Concomitant]
     Active Substance: AMIODARONE HYDROCHLORIDE
     Dosage: 150 MG BOLUS
     Route: 065
  5. LIDOCAINE. [Suspect]
     Active Substance: LIDOCAINE
     Indication: VENTRICULAR TACHYCARDIA
     Dosage: 4MG/MIN, INFUSION
     Route: 042
  6. LIDOCAINE. [Suspect]
     Active Substance: LIDOCAINE
     Dosage: 2MG/MIN, INFUSION
     Route: 042
  7. AMIODARONE HCL [Concomitant]
     Active Substance: AMIODARONE HYDROCHLORIDE
     Indication: VENTRICULAR TACHYCARDIA
     Dosage: 0.5MG/MINUNK
     Route: 065

REACTIONS (7)
  - Respiratory acidosis [Recovered/Resolved]
  - Product use in unapproved indication [Recovered/Resolved]
  - Toxicity to various agents [Recovered/Resolved]
  - Blood creatinine increased [Unknown]
  - Status epilepticus [Recovered/Resolved]
  - Transaminases increased [Unknown]
  - Local anaesthetic systemic toxicity [Recovered/Resolved]
